FAERS Safety Report 14517356 (Version 2)
Quarter: 2024Q3

REPORT INFORMATION
  Report Type: Spontaneous
  Country: LB (occurrence: LB)
  Receive Date: 20180212
  Receipt Date: 20240716
  Transmission Date: 20241017
  Serious: Yes (Other)
  Sender: ROCHE
  Company Number: LB-ROCHE-2071822

PATIENT
  Age: 49 Year
  Sex: Female

DRUGS (5)
  1. RITUXIMAB [Suspect]
     Active Substance: RITUXIMAB
     Indication: ABO incompatibility
     Dosage: STARTED ON DAY +70 DAYS AFTER TRANSPLANTATION; TOTAL OF 4 DOSES? FREQUENCY TEXT:WEEKLY
     Route: 065
  2. MYCOPHENOLATE MOFETIL [Suspect]
     Active Substance: MYCOPHENOLATE MOFETIL
     Indication: Prophylaxis against graft versus host disease
     Route: 065
  3. CYCLOSPORINE [Suspect]
     Active Substance: CYCLOSPORINE
     Indication: Prophylaxis against graft versus host disease
     Route: 065
  4. RISPERIDONE [Concomitant]
     Active Substance: RISPERIDONE
     Dates: start: 201612
  5. SORAFENIB [Concomitant]
     Active Substance: SORAFENIB
     Route: 048

REACTIONS (2)
  - Cytomegalovirus infection reactivation [Recovered/Resolved]
  - Progressive multifocal leukoencephalopathy [Recovered/Resolved]
